FAERS Safety Report 5124296-6 (Version None)
Quarter: 2006Q4

REPORT INFORMATION
  Report Type: 
  Country: None (occurrence: None)
  Receive Date: 20060816
  Receipt Date: 20060502
  Transmission Date: 20070319
  Serious: No
  Sender: FDA-Public Use
  Company Number: US200605000701

PATIENT
  Age: 45 Year
  Sex: Male
  Weight: 136.1 kg

DRUGS (1)
  1. CIALIS [Suspect]
     Indication: ERECTILE DYSFUNCTION
     Dosage: 20 MG , AS NEEDED

REACTIONS (1)
  - THERAPEUTIC RESPONSE DECREASED [None]
